FAERS Safety Report 8294396-0 (Version None)
Quarter: 2012Q2

REPORT INFORMATION
  Report Type: 
  Country: None (occurrence: None)
  Receive Date: 20120418
  Receipt Date: 20120413
  Transmission Date: 20120825
  Serious: Yes (Other)
  Sender: FDA-Public Use
  Company Number: US-PFIZER INC-2012007941

PATIENT
  Sex: Female
  Weight: 73 kg

DRUGS (5)
  1. PREMARIN [Suspect]
     Dosage: 0.3 MG, 1 TAB Q DAILY
     Route: 048
  2. PRILOSEC [Concomitant]
     Indication: GASTROOESOPHAGEAL REFLUX DISEASE
     Dosage: 20 MG, AS NEEDED
  3. PREMARIN [Suspect]
     Indication: HORMONE REPLACEMENT THERAPY
     Dosage: 0.625 MG, DAILY
     Route: 048
     Dates: start: 19970101
  4. ACETYLSALICYLIC ACID [Concomitant]
     Indication: PAIN
     Dosage: 325 MG, AS NEEDED
  5. DIAZEPAM [Concomitant]
     Indication: MUSCLE DISORDER
     Dosage: 5 MG, AS NEEDED

REACTIONS (3)
  - INAPPROPRIATE SCHEDULE OF DRUG ADMINISTRATION [None]
  - AMNESIA [None]
  - DISTURBANCE IN ATTENTION [None]
